FAERS Safety Report 8777506 (Version 2)
Quarter: 2012Q4

REPORT INFORMATION
  Report Type: Report from Study
  Country: DE (occurrence: DE)
  Receive Date: 20120911
  Receipt Date: 20120923
  Transmission Date: 20130627
  Serious: Yes (Hospitalization)
  Sender: FDA-Public Use
  Company Number: DE-ABBOTT-12P-062-0975911-00

PATIENT
  Age: 60 Year
  Sex: Male
  Weight: 96 kg

DRUGS (3)
  1. KALETRA [Suspect]
     Indication: HIV INFECTION
     Dates: start: 20100204
  2. MARAVIROC [Concomitant]
     Indication: HIV INFECTION
     Dates: start: 20100204
  3. KIVEXA [Concomitant]
     Indication: HIV INFECTION
     Dates: start: 20100204

REACTIONS (4)
  - Abscess [Not Recovered/Not Resolved]
  - Osteitis [Not Recovered/Not Resolved]
  - Pathological fracture [Not Recovered/Not Resolved]
  - Staphylococcal abscess [Unknown]
